FAERS Safety Report 21646853 (Version 2)
Quarter: 2022Q4

REPORT INFORMATION
  Report Type: Spontaneous
  Country: IL (occurrence: IL)
  Receive Date: 20221127
  Receipt Date: 20221212
  Transmission Date: 20230113
  Serious: Yes (Other)
  Sender: FDA-Public Use
  Company Number: IL-TEVAIL-2022-IL-2829035

PATIENT
  Age: 9 Year
  Sex: Female

DRUGS (4)
  1. CARBOPLATIN [Suspect]
     Active Substance: CARBOPLATIN
     Indication: Clear cell sarcoma of soft tissue
     Route: 065
  2. IPILIMUMAB [Suspect]
     Active Substance: IPILIMUMAB
     Indication: Clear cell sarcoma of soft tissue
     Route: 065
  3. NIVOLUMAB [Suspect]
     Active Substance: NIVOLUMAB
     Indication: Clear cell sarcoma of soft tissue
     Dosage: ADDITIONAL INFO: ACTION TAKEN: THERAPY CONTINUED
     Route: 065
  4. CABOZANTINIB [Suspect]
     Active Substance: CABOZANTINIB
     Indication: Clear cell sarcoma of soft tissue
     Dosage: 40 MILLIGRAM DAILY; SCHEDULED DOSE REDUCTION; FOR 24 MONTHS WITH A DAILY DOSE OF 40-20 MG/DAY , ADDI
     Route: 065

REACTIONS (7)
  - Therapy non-responder [Unknown]
  - Abdominal pain [Unknown]
  - Decreased appetite [Unknown]
  - Weight decreased [Unknown]
  - Hair colour changes [Unknown]
  - Hypothyroidism [Unknown]
  - Off label use [Unknown]
